FAERS Safety Report 25553328 (Version 1)
Quarter: 2025Q3

REPORT INFORMATION
  Report Type: Spontaneous
  Country: IN (occurrence: IN)
  Receive Date: 20250715
  Receipt Date: 20250715
  Transmission Date: 20251021
  Serious: Yes (Life-Threatening, Hospitalization)
  Sender: ACCORD
  Company Number: IN-MLMSERVICE-20250627-PI557512-00255-1

PATIENT
  Age: 58 Year
  Sex: Female

DRUGS (4)
  1. CARBOPLATIN [Suspect]
     Active Substance: CARBOPLATIN
     Indication: Breast cancer metastatic
  2. PACLITAXEL [Suspect]
     Active Substance: PACLITAXEL
     Indication: Breast cancer metastatic
  3. ADRIAMYCIN [Suspect]
     Active Substance: DOXORUBICIN HYDROCHLORIDE
     Indication: Breast cancer metastatic
  4. CYCLOPHOSPHAMIDE [Suspect]
     Active Substance: CYCLOPHOSPHAMIDE
     Indication: Breast cancer metastatic

REACTIONS (6)
  - Pancytopenia [Recovered/Resolved]
  - Burkholderia pseudomallei infection [Recovering/Resolving]
  - Sepsis [Recovering/Resolving]
  - Arthritis bacterial [Recovering/Resolving]
  - Multiple organ dysfunction syndrome [Recovering/Resolving]
  - Febrile neutropenia [Recovered/Resolved]
